FAERS Safety Report 11671725 (Version 1)
Quarter: 2015Q4

REPORT INFORMATION
  Report Type: Report from Study
  Country: US (occurrence: US)
  Receive Date: 20151028
  Receipt Date: 20151028
  Transmission Date: 20160304
  Serious: Yes (Hospitalization)
  Sender: FDA-Public Use
  Company Number: PHHY2015US057986

PATIENT
  Age: 66 Year
  Sex: Female
  Weight: 53.1 kg

DRUGS (12)
  1. ADVIL [Concomitant]
     Active Substance: IBUPROFEN
     Indication: ARTHRALGIA
  2. CORTIZONE 10 [Concomitant]
     Active Substance: HYDROCORTISONE
     Indication: RASH
     Dosage: 1 %, DAILY
     Route: 061
     Dates: start: 201504, end: 201505
  3. CALCIUM + VITAMIN D3 [Concomitant]
     Indication: PRODUCT USED FOR UNKNOWN INDICATION
     Route: 065
  4. XANAX [Concomitant]
     Active Substance: ALPRAZOLAM
     Indication: ANXIETY
     Dosage: 0.25 MG, UNK
     Route: 048
     Dates: start: 2005
  5. RESTASIS [Concomitant]
     Active Substance: CYCLOSPORINE
     Indication: DRY EYE
     Dosage: 0.05 %, UNK
     Route: 065
  6. ZOLEDRONIC ACID [Concomitant]
     Active Substance: ZOLEDRONIC ACID
     Indication: METASTASES TO BONE
     Dosage: 4 MG, UNK
     Route: 042
  7. ADVIL [Concomitant]
     Active Substance: IBUPROFEN
     Indication: MALAISE
     Dosage: 60 MG, DAILY
     Route: 048
     Dates: start: 201503
  8. AMBIEN [Concomitant]
     Active Substance: ZOLPIDEM TARTRATE
     Indication: INSOMNIA
     Dosage: 10 MG, UNK
     Route: 048
  9. TASELISIB [Suspect]
     Active Substance: TASELISIB
     Indication: BREAST CANCER
     Dosage: 4 MG, DAILY
     Route: 048
     Dates: start: 20150401
  10. TYLENOL [Concomitant]
     Active Substance: ACETAMINOPHEN
     Indication: HEADACHE
     Dosage: 1000 MG, UNK
     Route: 048
     Dates: start: 201505, end: 201507
  11. GENERIC LETROZOLE [Suspect]
     Active Substance: LETROZOLE
     Indication: BREAST CANCER
     Dosage: 2.5 MG, DAILY
     Route: 048
     Dates: start: 20150401
  12. ADVIL [Concomitant]
     Active Substance: IBUPROFEN
     Indication: HEADACHE

REACTIONS (3)
  - Hypertension [Recovered/Resolved]
  - Dizziness [Recovered/Resolved]
  - Balance disorder [Unknown]

NARRATIVE: CASE EVENT DATE: 20150413
